FAERS Safety Report 12872465 (Version 1)
Quarter: 2016Q4

REPORT INFORMATION
  Report Type: Spontaneous
  Country: US (occurrence: US)
  Receive Date: 20161021
  Receipt Date: 20161021
  Transmission Date: 20170207
  Serious: No
  Sender: FDA-Public Use
  Company Number: US-LUPIN PHARMACEUTICALS INC.-E2B_00006045

PATIENT
  Sex: Female
  Weight: 98 kg

DRUGS (2)
  1. LISINOPRIL AND HYDROCHLOROTHIAZIDE TABLETS USP 20MG/12.5 MG [Suspect]
     Active Substance: HYDROCHLOROTHIAZIDE\LISINOPRIL
     Indication: HYPERTENSION
     Dosage: 20/12.5 MG
     Route: 048
     Dates: start: 20160714
  2. METOPROLOL. [Concomitant]
     Active Substance: METOPROLOL
     Indication: HYPERTENSION
     Route: 065

REACTIONS (12)
  - Vertigo [Unknown]
  - Depression [Unknown]
  - Vascular compression [Unknown]
  - Asthenia [Unknown]
  - Alopecia [Unknown]
  - Depressed mood [Unknown]
  - Dry mouth [Unknown]
  - Bone pain [Unknown]
  - Mania [Unknown]
  - Dry eye [Unknown]
  - Sleep disorder [Unknown]
  - Abdominal distension [Unknown]
